FAERS Safety Report 10592485 (Version 2)
Quarter: 2014Q4

REPORT INFORMATION
  Report Type: Spontaneous
  Country: JP (occurrence: JP)
  Receive Date: 20141119
  Receipt Date: 20141212
  Transmission Date: 20150529
  Serious: Yes (Death)
  Sender: FDA-Public Use
  Company Number: PHHY2014JP150085

PATIENT
  Age: 68 Year
  Sex: Male

DRUGS (1)
  1. NEORAL [Suspect]
     Active Substance: CYCLOSPORINE
     Indication: PSORIASIS
     Dosage: 150 MG, QD
     Route: 048

REACTIONS (3)
  - Metastases to lymph nodes [Fatal]
  - Metastases to lung [Fatal]
  - Lymphoma [Fatal]

NARRATIVE: CASE EVENT DATE: 200909
